FAERS Safety Report 4728276-1 (Version None)
Quarter: 2005Q3

REPORT INFORMATION
  Report Type: 
  Country: None (occurrence: None)
  Receive Date: 20050727
  Receipt Date: 20050711
  Transmission Date: 20060218
  Serious: Yes (Hospitalization)
  Sender: FDA-Public Use
  Company Number: DSA_26764_2005

PATIENT
  Sex: Male

DRUGS (1)
  1. ISORDIL [Suspect]
     Dosage: DF TID UNK
     Dates: start: 19850101

REACTIONS (2)
  - BACTERIAL INFECTION [None]
  - CHEST PAIN [None]
